FAERS Safety Report 5022454-2 (Version None)
Quarter: 2006Q2

REPORT INFORMATION
  Report Type: 
  Country: None (occurrence: None)
  Receive Date: 20060609
  Receipt Date: 20060531
  Transmission Date: 20061013
  Serious: Yes (Hospitalization)
  Sender: FDA-Public Use
  Company Number: HR-ROCHE-449905

PATIENT
  Age: 45 Year
  Sex: Male

DRUGS (3)
  1. ROFERON-A [Suspect]
     Route: 058
  2. HYDROXYUREA [Concomitant]
  3. ALLOPURINOL [Concomitant]

REACTIONS (8)
  - FIBROSIS [None]
  - HAEMOLYTIC URAEMIC SYNDROME [None]
  - HEPATOSPLENOMEGALY [None]
  - HYPERTENSION [None]
  - OEDEMA PERIPHERAL [None]
  - RALES [None]
  - RENAL IMPAIRMENT [None]
  - THROMBOTIC MICROANGIOPATHY [None]
